FAERS Safety Report 5149523-0 (Version None)
Quarter: 2006Q4

REPORT INFORMATION
  Report Type: 
  Country: None (occurrence: None)
  Receive Date: 20061113
  Receipt Date: 20060309
  Transmission Date: 20070319
  Serious: Yes (Hospitalization)
  Sender: FDA-Public Use
  Company Number: US-GLAXOSMITHKLINE-A0596953A

PATIENT
  Age: 59 Year
  Sex: Male

DRUGS (1)
  1. COREG [Suspect]
     Dosage: 100MG UNKNOWN
     Route: 048

REACTIONS (1)
  - CARDIAC FAILURE CONGESTIVE [None]
